FAERS Safety Report 10653892 (Version 11)
Quarter: 2019Q1

REPORT INFORMATION
  Report Type: Report from Study
  Country: US (occurrence: US)
  Receive Date: 20141216
  Receipt Date: 20190314
  Transmission Date: 20190417
  Serious: Yes (Other)
  Sender: FDA-Public Use
  Company Number: PHHY2014US160876

PATIENT
  Age: 55 Year
  Sex: Female

DRUGS (4)
  1. MEDROL [Concomitant]
     Active Substance: METHYLPREDNISOLONE
     Indication: MULTIPLE SCLEROSIS RELAPSE
     Dosage: UNK
     Route: 065
     Dates: start: 20160222, end: 20160302
  2. GILENYA [Suspect]
     Active Substance: FINGOLIMOD HYDROCHLORIDE
     Indication: MULTIPLE SCLEROSIS
     Dosage: 0.5 MG, QD
     Route: 048
     Dates: start: 20140401
  3. SOLU-MEDROL [Concomitant]
     Active Substance: METHYLPREDNISOLONE SODIUM SUCCINATE
     Indication: MULTIPLE SCLEROSIS RELAPSE
     Dosage: 1 DF (1G IN 250CCS NS), QD
     Route: 042
     Dates: start: 20160222, end: 20160226
  4. RANITIDINE. [Concomitant]
     Active Substance: RANITIDINE
     Indication: MULTIPLE SCLEROSIS RELAPSE
     Dosage: 150 MG, BID
     Route: 048
     Dates: start: 20160222, end: 20160302

REACTIONS (9)
  - Lacrimation decreased [Recovered/Resolved]
  - Leukopenia [Recovered/Resolved]
  - Pulmonary mass [Unknown]
  - Pneumonia [Unknown]
  - Pterygium [Recovered/Resolved]
  - Amnesia [Unknown]
  - Rosacea [Unknown]
  - Lymphopenia [Recovered/Resolved]
  - Cataract nuclear [Recovered/Resolved]

NARRATIVE: CASE EVENT DATE: 20140904
